FAERS Safety Report 14014811 (Version 2)
Quarter: 2017Q3

REPORT INFORMATION
  Report Type: Spontaneous
  Country: US (occurrence: US)
  Receive Date: 20170927
  Receipt Date: 20170928
  Transmission Date: 20171128
  Serious: No
  Sender: FDA-Public Use
  Company Number: US-PFIZER INC-2017415225

PATIENT
  Age: 51 Year
  Sex: Male
  Weight: 105.2 kg

DRUGS (19)
  1. MORPHINE ER [Concomitant]
     Active Substance: MORPHINE
     Indication: PAIN IN EXTREMITY
  2. OXYCODONE [Concomitant]
     Active Substance: OXYCODONE
     Indication: PAIN
     Dosage: 10.325 MG, 2X/DAY(10.325MG ONE TABLET TWICE A DAY BY MOUTH)
     Route: 048
  3. MONTELUKAST [Concomitant]
     Active Substance: MONTELUKAST SODIUM
     Indication: HYPERSENSITIVITY
     Dosage: 10 MG, 1X/DAY (10MG ONE TABLET ONCE A DAY)
     Route: 048
  4. METOPROLOL. [Concomitant]
     Active Substance: METOPROLOL
     Indication: CARDIOVASCULAR DISORDER
     Dosage: 25 MG, 1X/DAY (25MG TABLET ONCE A DAY)
     Route: 048
  5. FLUOXETINE [Concomitant]
     Active Substance: FLUOXETINE HYDROCHLORIDE
     Indication: DEPRESSION
     Dosage: 40 MG, 2X/DAY (40MG TABLET TWICE A DAY)
     Route: 048
  6. HYDROCHLOROTHIAZIDE. [Concomitant]
     Active Substance: HYDROCHLOROTHIAZIDE
     Indication: DIURETIC THERAPY
     Dosage: 25 MG, 1X/DAY (25MG TABLET ONCE A DAY)
     Route: 048
  7. CENTRUM [Concomitant]
     Active Substance: VITAMINS
     Indication: SUPPLEMENTATION THERAPY
     Dosage: 1 DF, 1X/DAY (ONE TABLET ONCE A DAY)
     Route: 048
  8. LEVOCETIRIZINE [Concomitant]
     Active Substance: LEVOCETIRIZINE
     Indication: HYPERSENSITIVITY
     Dosage: 5 MG, 1X/DAY (5MG ONE TABLET ONCE A DAY)
     Route: 048
  9. ROBAXIN [Concomitant]
     Active Substance: METHOCARBAMOL
     Indication: MUSCLE SPASMS
     Dosage: 750 MG, 4X/DAY(750MG ONE TABLET FOUR TIME A DAY)
  10. LISINOPRIL. [Concomitant]
     Active Substance: LISINOPRIL
     Indication: HYPERTENSION
     Dosage: 40 MG, 1X/DAY (40MG TABLET ONCE A DAY)
     Route: 048
  11. ASPIRIN. [Concomitant]
     Active Substance: ASPIRIN
     Indication: ANTICOAGULANT THERAPY
     Dosage: 81 MG, DAILY (81 MG TABLET ONE A DAY)
     Route: 048
  12. GABAPENTIN. [Suspect]
     Active Substance: GABAPENTIN
     Indication: NEURALGIA
  13. MORPHINE ER [Concomitant]
     Active Substance: MORPHINE
     Indication: BACK PAIN
     Dosage: 15 MG, 2X/DAY(15MG TABLET TWICE A DAY BY MOUTH)
     Route: 048
  14. MORPHINE ER [Concomitant]
     Active Substance: MORPHINE
     Indication: NECK PAIN
  15. VITAMIN B12 [Concomitant]
     Active Substance: CYANOCOBALAMIN
     Indication: SUPPLEMENTATION THERAPY
     Dosage: 1000 MG, 1X/DAY (1000MG TABLET ONCE A DAY)
     Route: 048
  16. GABAPENTIN. [Suspect]
     Active Substance: GABAPENTIN
     Indication: NEUROPATHY PERIPHERAL
     Dosage: 400 MG, 3X/DAY
     Route: 048
     Dates: end: 20170923
  17. MORPHINE ER [Concomitant]
     Active Substance: MORPHINE
     Indication: PAIN IN EXTREMITY
  18. PANTOPRAZOLE [Concomitant]
     Active Substance: PANTOPRAZOLE
     Indication: GASTRIC DISORDER
     Dosage: 40 MG, 1X/DAY (40MG TABLET ONCE A DAY)
     Route: 048
  19. LEVOCETIRIZINE [Concomitant]
     Active Substance: LEVOCETIRIZINE
     Indication: SINUS DISORDER

REACTIONS (3)
  - Condition aggravated [Unknown]
  - Neuralgia [Unknown]
  - Drug ineffective for unapproved indication [Unknown]
